FAERS Safety Report 21704307 (Version 1)
Quarter: 2022Q4

REPORT INFORMATION
  Report Type: Report from Study
  Country: None (occurrence: GB)
  Receive Date: 20221209
  Receipt Date: 20221209
  Transmission Date: 20230113
  Serious: Yes (Other)
  Sender: FDA-Public Use
  Company Number: GB-Therakind Limited-2135713

PATIENT
  Age: 52 Year
  Sex: Female

DRUGS (7)
  1. METHOTREXATE [Suspect]
     Active Substance: METHOTREXATE
     Indication: Product used for unknown indication
  2. SECUKINUMAB [Suspect]
     Active Substance: SECUKINUMAB
  3. AMITRIPTYLINE [Concomitant]
     Active Substance: AMITRIPTYLINE
     Route: 065
  4. IMIGRAN?Substance Name :-SUMATRIPTAN SUCCINATE, SUMATRIPTAN [Concomitant]
  5. NORETHINDRONE [Concomitant]
     Active Substance: NORETHINDRONE
     Route: 065
  6. NORETHINDRONE [Concomitant]
     Active Substance: NORETHINDRONE
     Route: 065
  7. ZOLMITRIPTAN [Concomitant]
     Active Substance: ZOLMITRIPTAN
     Route: 065

REACTIONS (20)
  - Madarosis [Recovering/Resolving]
  - Nasal congestion [Not Recovered/Not Resolved]
  - Alopecia [Not Recovered/Not Resolved]
  - Pruritus [Not Recovered/Not Resolved]
  - Injection site haemorrhage [Recovering/Resolving]
  - Neck pain [Not Recovered/Not Resolved]
  - Lymphadenopathy [Unknown]
  - Vaginal haemorrhage [Not Recovered/Not Resolved]
  - Cough [Not Recovered/Not Resolved]
  - Injection site bruising [Recovering/Resolving]
  - Uterine haemorrhage [Unknown]
  - Uterine cyst [Unknown]
  - Uterine leiomyoma [Unknown]
  - Lacrimation increased [Not Recovered/Not Resolved]
  - Weight decreased [Not Recovered/Not Resolved]
  - Abdominal pain [Unknown]
  - Back pain [Not Recovered/Not Resolved]
  - Dysmenorrhoea [Unknown]
  - Abdominal distension [Unknown]
  - Menstruation irregular [Unknown]
